FAERS Safety Report 8140717-9 (Version None)
Quarter: 2012Q1

REPORT INFORMATION
  Report Type: 
  Country: None (occurrence: None)
  Receive Date: 20120216
  Receipt Date: 20120208
  Transmission Date: 20120608
  Serious: Yes (Other)
  Sender: FDA-Public Use
  Company Number: US-US-EMD SERONO, INC.-7112640

PATIENT
  Sex: Female

DRUGS (1)
  1. REBIF [Suspect]
     Indication: PRODUCT USED FOR UNKNOWN INDICATION
     Route: 058
     Dates: start: 20070112

REACTIONS (8)
  - WRIST FRACTURE [None]
  - DISTURBANCE IN ATTENTION [None]
  - INJECTION SITE ERYTHEMA [None]
  - DYSARTHRIA [None]
  - FATIGUE [None]
  - INJECTION SITE DISCOLOURATION [None]
  - FALL [None]
  - JOINT INJURY [None]
